FAERS Safety Report 14325744 (Version 6)
Quarter: 2021Q4

REPORT INFORMATION
  Report Type: Report from Study
  Country: FR (occurrence: FR)
  Receive Date: 20171226
  Receipt Date: 20211021
  Transmission Date: 20220303
  Serious: Yes (Other)
  Sender: FDA-Public Use
  Company Number: FR-EMA-DD-20171208-DKEVHPROD-152436

PATIENT
  Sex: Female

DRUGS (25)
  1. DEXAMETHASONE [Suspect]
     Active Substance: DEXAMETHASONE
     Indication: Acute lymphocytic leukaemia
     Dosage: START DATE:25-SEP-2017, END: 15-OCT-2017
     Route: 065
  2. DEXAMETHASONE [Suspect]
     Active Substance: DEXAMETHASONE
     Dosage: 42 MILLIGRAM/ START DATE: 09-SEP-2017,END:15-OCT-2017
     Route: 065
  3. METHOTREXATE [Suspect]
     Active Substance: METHOTREXATE
     Indication: Acute lymphocytic leukaemia
     Dosage: 12 MG, UNK
     Route: 037
  4. METHOTREXATE [Suspect]
     Active Substance: METHOTREXATE
     Dosage: 10 MG, UNK
     Route: 037
  5. PEGASPARGASE [Suspect]
     Active Substance: PEGASPARGASE
     Indication: Acute lymphocytic leukaemia
     Dosage: 1350 IU, UNK/ START DATE: 04-JUL-2017
     Route: 065
     Dates: end: 20170704
  6. PEGASPARGASE [Suspect]
     Active Substance: PEGASPARGASE
     Dosage: 1425 IU, 1X/DAY:QD/ START ATE:28-SEP-2017
     Route: 042
     Dates: end: 20170928
  7. PEGASPARGASE [Suspect]
     Active Substance: PEGASPARGASE
     Dosage: 1350 INTERNATIONAL UNIT/ START DATE:26-MAY-2017
     Route: 065
     Dates: end: 20170526
  8. CYTARABINE [Suspect]
     Active Substance: CYTARABINE
     Indication: Acute lymphocytic leukaemia
     Dosage: 25 MG, UNK
     Route: 037
  9. CYTARABINE [Suspect]
     Active Substance: CYTARABINE
     Dosage: 30 MILLIGRAM/ START DATE:28-SEP-2017
     Route: 037
     Dates: end: 20170928
  10. CYTARABINE [Suspect]
     Active Substance: CYTARABINE
     Dosage: 25 MILLIGRAM/ START DATE:25-MAY-2017
     Route: 037
     Dates: end: 20170525
  11. DOXORUBICIN [Suspect]
     Active Substance: DOXORUBICIN
     Indication: Acute lymphocytic leukaemia
     Dosage: 14.4 MILLIGRAM/ START DATE: 25-SEP-2017
     Route: 065
     Dates: end: 20171009
  12. DOXORUBICIN [Suspect]
     Active Substance: DOXORUBICIN
     Dosage: 13.2 MILLIGRAM/ START DATE:23-MAY-2017
     Route: 065
     Dates: end: 20170523
  13. DOXORUBICIN [Suspect]
     Active Substance: DOXORUBICIN
     Dosage: 13.2 MILLIGRAM/ START DATE: 30-MAY-2017
     Route: 065
     Dates: end: 20170530
  14. DOXORUBICIN [Suspect]
     Active Substance: DOXORUBICIN
     Dosage: 13.2 MILLIGRAM/ START DATE: 06-JUN-2017
     Route: 065
     Dates: end: 20170606
  15. VINCRISTINE [Suspect]
     Active Substance: VINCRISTINE
     Indication: Acute lymphocytic leukaemia
     Dosage: 0.8 MILLIGRAM/ START DATE:06-JUN-2017
     Route: 065
     Dates: end: 20170606
  16. VINCRISTINE [Suspect]
     Active Substance: VINCRISTINE
     Dosage: 0.88 MG, 1X/DAY:QD/ START DATE:25-SEP-2017
     Route: 065
     Dates: end: 20171009
  17. VINCRISTINE [Suspect]
     Active Substance: VINCRISTINE
     Dosage: 0.8 MILLIGRAM/ START DATE:11-JUL-2017
     Route: 065
     Dates: end: 20170711
  18. VINCRISTINE [Suspect]
     Active Substance: VINCRISTINE
     Dosage: 0.8 MILLIGRAM/ START DATE:23-MAY-2017
     Route: 065
     Dates: end: 20170523
  19. VINCRISTINE [Suspect]
     Active Substance: VINCRISTINE
     Dosage: 0.8 MILLIGRAM/ START DATE:30-MAY-2017
     Route: 065
     Dates: end: 20170530
  20. VINCRISTINE [Suspect]
     Active Substance: VINCRISTINE
     Dosage: 0.8 MILLIGRAM/ START DATE:04-JUL-2017
     Route: 065
     Dates: end: 20170704
  21. MERCAPTOPURINE [Suspect]
     Active Substance: MERCAPTOPURINE
     Indication: Acute lymphocytic leukaemia
     Dosage: UNK
     Route: 065
  22. CYTARABINE [Suspect]
     Active Substance: CYTARABINE
     Indication: Acute lymphocytic leukaemia
     Dosage: 30 MILLIGRAM/ START DATE:28-SEP-2017
     Route: 037
     Dates: end: 20170928
  23. HYDROCORTISONE [Suspect]
     Active Substance: HYDROCORTISONE
     Indication: Acute lymphocytic leukaemia
     Dosage: 15 MG, 1X/DAY:QD/ START DATE: 28-SEP-2017
     Route: 037
     Dates: end: 20170928
  24. HYDROCORTISONE [Suspect]
     Active Substance: HYDROCORTISONE
     Dosage: 15 MILLIGRAM, QD
     Route: 037
  25. CYCLOPHOSPHAMIDE [Suspect]
     Active Substance: CYCLOPHOSPHAMIDE
     Indication: Acute lymphocytic leukaemia
     Dosage: 540 MILLIGRAM/ START DATE: 20-JUN-2017
     Route: 065
     Dates: end: 20170620

REACTIONS (3)
  - Off label use [Unknown]
  - Product use in unapproved indication [Unknown]
  - Hyperlipidaemia [Recovered/Resolved]

NARRATIVE: CASE EVENT DATE: 20170523
